FAERS Safety Report 19646290 (Version 3)
Quarter: 2021Q4

REPORT INFORMATION
  Report Type: Report from Study
  Country: AU (occurrence: AU)
  Receive Date: 20210802
  Receipt Date: 20211005
  Transmission Date: 20220303
  Serious: Yes (Hospitalization)
  Sender: FDA-Public Use
  Company Number: AU-BIOGEN-2021BI01035100

PATIENT
  Sex: Female

DRUGS (2)
  1. PLEGRIDY [Suspect]
     Active Substance: PEGINTERFERON BETA-1A
     Indication: Multiple sclerosis
     Route: 058
     Dates: start: 20200711, end: 202105
  2. COVID-19 vaccine [Concomitant]
     Indication: COVID-19 prophylaxis
     Dosage: THE PATIENT RECEIVED 1 DOSE OF COVID-19 VACCINE TWO WEEKS APART. TOTAL = 2 DOSES
     Route: 065
     Dates: start: 2021, end: 2021

REACTIONS (1)
  - Meningitis [Unknown]

NARRATIVE: CASE EVENT DATE: 20210101
